FAERS Safety Report 10531356 (Version 1)
Quarter: 2014Q4

REPORT INFORMATION
  Report Type: Spontaneous
  Country: TW (occurrence: TW)
  Receive Date: 20141021
  Receipt Date: 20141021
  Transmission Date: 20150529
  Serious: Yes (Other)
  Sender: FDA-Public Use
  Company Number: TW-WATSON-2014-22275

PATIENT
  Age: 62 Year
  Sex: Male

DRUGS (5)
  1. LAMOTRIGINE. [Concomitant]
     Active Substance: LAMOTRIGINE
     Dosage: 75 MG, DAILY
     Route: 065
  2. BUPROPION HYDROCHLORIDE (UNKNOWN) [Suspect]
     Active Substance: BUPROPION HYDROCHLORIDE
     Indication: BIPOLAR II DISORDER
     Dosage: 150 MG, DAILY
     Route: 065
  3. RISPERIDONE (UNKNOWN) [Interacting]
     Active Substance: RISPERIDONE
     Indication: BIPOLAR II DISORDER
     Dosage: UNK
     Route: 065
  4. BUPROPION HYDROCHLORIDE (UNKNOWN) [Interacting]
     Active Substance: BUPROPION HYDROCHLORIDE
     Dosage: 300 MG, DAILY
     Route: 065
  5. LAMOTRIGINE. [Concomitant]
     Active Substance: LAMOTRIGINE
     Indication: BIPOLAR DISORDER
     Dosage: 25 MG, DAILY
     Route: 065

REACTIONS (3)
  - Off label use [Unknown]
  - Delirium [Recovered/Resolved]
  - Drug interaction [Recovered/Resolved]
